FAERS Safety Report 6266639-6 (Version None)
Quarter: 2009Q3

REPORT INFORMATION
  Report Type: 
  Country: None (occurrence: None)
  Receive Date: 20090710
  Receipt Date: 20090701
  Transmission Date: 20100115
  Serious: No
  Sender: FDA-Public Use
  Company Number: 20096927

PATIENT
  Sex: Female

DRUGS (1)
  1. LIORESAL [Suspect]
     Indication: MUSCLE SPASTICITY
     Dosage: 75 MCG, DAILY, INTRATHECAL
     Route: 037

REACTIONS (19)
  - CONDITION AGGRAVATED [None]
  - DEVICE FAILURE [None]
  - DISORIENTATION [None]
  - DIZZINESS [None]
  - DRUG INEFFECTIVE [None]
  - DRUG WITHDRAWAL SYNDROME [None]
  - FEAR [None]
  - FEELING ABNORMAL [None]
  - GAIT DISTURBANCE [None]
  - HEADACHE [None]
  - LOSS OF CONSCIOUSNESS [None]
  - MEDICAL DEVICE PAIN [None]
  - MUSCLE RIGIDITY [None]
  - MUSCLE SPASTICITY [None]
  - OVERDOSE [None]
  - PARAESTHESIA [None]
  - UNDERDOSE [None]
  - VERTIGO [None]
  - VISUAL IMPAIRMENT [None]
